FAERS Safety Report 21057938 (Version 2)
Quarter: 2022Q3

REPORT INFORMATION
  Report Type: Spontaneous
  Country: FR (occurrence: None)
  Receive Date: 20220708
  Receipt Date: 20220826
  Transmission Date: 20221026
  Serious: Yes (Death, Hospitalization, Other)
  Sender: FDA-Public Use
  Company Number: 2022A242766

PATIENT
  Age: 86 Year
  Sex: Female
  Weight: 70.4 kg

DRUGS (12)
  1. RAMIPRIL [Suspect]
     Active Substance: RAMIPRIL
     Indication: Product used for unknown indication
     Dosage: 5.0MG UNKNOWN
     Route: 065
     Dates: start: 2017, end: 20220106
  2. ROSUVASTATIN [Suspect]
     Active Substance: ROSUVASTATIN
     Indication: Product used for unknown indication
     Dosage: 5.0MG UNKNOWN
     Route: 065
     Dates: start: 2017, end: 20220110
  3. ACETAMINOPHEN\BELLADONNA LEAF\CAFFEINE\OPIUM [Suspect]
     Active Substance: ACETAMINOPHEN\BELLADONNA LEAF\CAFFEINE\OPIUM
     Indication: Product used for unknown indication
     Route: 065
     Dates: start: 2017, end: 20220110
  4. GABAPENTIN [Suspect]
     Active Substance: GABAPENTIN
     Indication: Product used for unknown indication
     Dosage: 900.0MG UNKNOWN
     Route: 065
     Dates: start: 202111, end: 20220110
  5. APIXABAN [Suspect]
     Active Substance: APIXABAN
     Indication: Ischaemic stroke
     Dosage: 5.0MG UNKNOWN
     Route: 048
     Dates: start: 20211115, end: 20220106
  6. ACETAMINOPHEN [Suspect]
     Active Substance: ACETAMINOPHEN
     Indication: Product used for unknown indication
     Dosage: 500.0MG UNKNOWN
     Route: 065
     Dates: start: 2017, end: 20220110
  7. PREDNISONE [Concomitant]
     Active Substance: PREDNISONE
     Dosage: 50.0MG UNKNOWN
     Route: 065
     Dates: start: 20211226
  8. CALCIUM\CHOLECALCIFEROL [Concomitant]
     Active Substance: CALCIUM\CHOLECALCIFEROL
     Dosage: 500 MG/400 UI
     Route: 065
     Dates: start: 2017
  9. BISOPROLOL [Concomitant]
     Active Substance: BISOPROLOL
     Indication: Product used for unknown indication
     Dosage: 2.5MG UNKNOWN
     Dates: start: 20211223
  10. OXAZEPAM [Concomitant]
     Active Substance: OXAZEPAM
     Dosage: 5.0MG UNKNOWN
     Dates: start: 20211222
  11. ENOXAPARIN SODIUM [Concomitant]
     Active Substance: ENOXAPARIN SODIUM
     Indication: Product used for unknown indication
     Dosage: 6000 UI
     Dates: start: 20220106
  12. LEVOTHYROXINE SODIUM [Concomitant]
     Active Substance: LEVOTHYROXINE SODIUM
     Dosage: 50.0UG/INHAL UNKNOWN
     Dates: start: 2017

REACTIONS (1)
  - Mixed liver injury [Fatal]

NARRATIVE: CASE EVENT DATE: 20220107
